FAERS Safety Report 9769600 (Version 1)
Quarter: 2013Q3

REPORT INFORMATION
  Report Type: Spontaneous
  Country: DE (occurrence: None)
  Receive Date: 20130910
  Receipt Date: 20130910
  Transmission Date: 20140515
  Serious: Yes (Other)
  Sender: FDA-Public Use
  Company Number: 1305-652

PATIENT
  Age: 89 Year
  Sex: Female

DRUGS (1)
  1. EYLEA (AFLIBERCEPT) (SOLUTION FOR INJECTION) (AFLIBERCEPT) [Suspect]
     Indication: AGE-RELATED MACULAR DEGENERATION
     Dosage: TOTAL OF 4 INJECTIONS IN EACH EYE
     Dates: start: 201301

REACTIONS (2)
  - Subretinal fluid [None]
  - Eye irritation [None]
